FAERS Safety Report 6933969-1 (Version None)
Quarter: 2010Q3

REPORT INFORMATION
  Report Type: 
  Country: None (occurrence: None)
  Receive Date: 20100820
  Receipt Date: 20100816
  Transmission Date: 20110219
  Serious: Yes (Death)
  Sender: FDA-Public Use
  Company Number: US-GILEAD-2010-0027615

PATIENT
  Sex: Female
  Weight: 58.112 kg

DRUGS (8)
  1. LETAIRIS [Suspect]
     Indication: PULMONARY ARTERIAL HYPERTENSION
     Route: 048
     Dates: start: 20090425
  2. REVATIO [Concomitant]
  3. DILTIAZEM [Concomitant]
  4. CELLCEPT [Concomitant]
  5. VICODIN [Concomitant]
  6. NEXIUM [Concomitant]
  7. PHOSLO [Concomitant]
  8. ADULT ASPIRIN [Concomitant]

REACTIONS (2)
  - RENAL DISORDER [None]
  - SCLERODERMA [None]
